FAERS Safety Report 7308707-3 (Version None)
Quarter: 2011Q1

REPORT INFORMATION
  Report Type: 
  Country: None (occurrence: None)
  Receive Date: 20110223
  Receipt Date: 20110210
  Transmission Date: 20110831
  Serious: Yes (Other)
  Sender: FDA-Public Use
  Company Number: PHHY2011US05370

PATIENT
  Sex: Female

DRUGS (4)
  1. IBUPROFEN [Concomitant]
     Indication: ANALGESIC THERAPY
     Dosage: 800 MG, PRN
  2. STEROIDS NOS [Concomitant]
  3. EXTAVIA [Suspect]
     Indication: MULTIPLE SCLEROSIS
     Dosage: 0.25 MG, QOD
     Route: 058
     Dates: start: 20100924
  4. CELEXA [Concomitant]
     Indication: DEPRESSION
     Dosage: 40 MG, QD

REACTIONS (6)
  - MUSCLE TIGHTNESS [None]
  - ABDOMINAL PAIN [None]
  - HYPOAESTHESIA [None]
  - HYPOAESTHESIA ORAL [None]
  - INFECTIOUS MONONUCLEOSIS [None]
  - MULTIPLE SCLEROSIS RELAPSE [None]
